FAERS Safety Report 21735011 (Version 1)
Quarter: 2022Q4

REPORT INFORMATION
  Report Type: Spontaneous
  Country: US (occurrence: None)
  Receive Date: 20221212
  Receipt Date: 20221212
  Transmission Date: 20230113
  Serious: Yes (Life-Threatening, Hospitalization)
  Sender: FDA-Public Use
  Company Number: None

PATIENT
  Age: 23 Year
  Sex: Female
  Weight: 28.85 kg

DRUGS (25)
  1. UNITUXIN [Suspect]
     Active Substance: DINUTUXIMAB
     Indication: Neuroblastoma
     Dosage: OTHER QUANTITY : 29.23 MG;?FREQUENCY : DAILY;?
     Route: 042
     Dates: start: 20221107, end: 20221109
  2. GRANULOCYTE-MACROPHAGE COLONY-STIMULATING FACTOR [Suspect]
     Active Substance: GRANULOCYTE-MACROPHAGE COLONY-STIMULATING FACTOR
     Indication: Neuroblastoma
     Dosage: FREQUENCY : DAILY;?
     Route: 058
     Dates: start: 202211, end: 20221114
  3. ACETAMINOPHEN [Concomitant]
     Active Substance: ACETAMINOPHEN
  4. ALBUMIN, HUMAN 25% [Concomitant]
  5. AZITHROMYCIN [Concomitant]
     Active Substance: AZITHROMYCIN
  6. CEFEPIME [Concomitant]
     Active Substance: CEFEPIME HYDROCHLORIDE
  7. CETIRIZINE [Concomitant]
     Active Substance: CETIRIZINE HYDROCHLORIDE
  8. DEXTROSE 5% AND Q.45% SODIUM CHLORIDE [Concomitant]
  9. DIPHENHYDRAMINE [Concomitant]
     Active Substance: DIPHENHYDRAMINE
  10. DRONABINOL [Concomitant]
     Active Substance: DRONABINOL
  11. FAMOTIDONE [Concomitant]
  12. FUROSEMIDE [Concomitant]
     Active Substance: FUROSEMIDE
  13. GABAPENTIN [Concomitant]
     Active Substance: GABAPENTIN
  14. HEPARIN, PORCINE [Concomitant]
  15. HYDROXYZINE [Concomitant]
     Active Substance: HYDROXYZINE HYDROCHLORIDE
  16. LORAZEPAM [Concomitant]
     Active Substance: LORAZEPAM
  17. MORPHINE [Concomitant]
     Active Substance: MORPHINE
  18. MORPHINE PCA CLINICIAN BOLUS [Concomitant]
  19. NALBUPHINE [Concomitant]
     Active Substance: NALBUPHINE
  20. PALONOSETRON [Concomitant]
     Active Substance: PALONOSETRON
  21. POTASSIUM IODIDE [Concomitant]
     Active Substance: POTASSIUM IODIDE
  22. SALT AND SODA MOUTHWASH [Concomitant]
  23. SCOPOLAMINE [Concomitant]
     Active Substance: SCOPOLAMINE
  24. SULFAMETHOXAZOLE\TRIMETHOPRIM [Concomitant]
     Active Substance: SULFAMETHOXAZOLE\TRIMETHOPRIM
  25. VANCOMYCIN [Concomitant]
     Active Substance: VANCOMYCIN

REACTIONS (6)
  - Capillary leak syndrome [None]
  - Blood albumin decreased [None]
  - Haemoglobin decreased [None]
  - Acute respiratory distress syndrome [None]
  - Transfusion reaction [None]
  - Hypoxic-ischaemic encephalopathy [None]

NARRATIVE: CASE EVENT DATE: 20221107
